FAERS Safety Report 19960373 (Version 3)
Quarter: 2022Q2

REPORT INFORMATION
  Report Type: Report from Study
  Country: US (occurrence: US)
  Receive Date: 20211015
  Receipt Date: 20220615
  Transmission Date: 20220721
  Serious: No
  Sender: FDA-Public Use
  Company Number: US-NOVARTISPH-NVSC2021US233248

PATIENT
  Sex: Female

DRUGS (1)
  1. ENTRESTO [Suspect]
     Active Substance: SACUBITRIL\VALSARTAN
     Indication: Product used for unknown indication
     Dosage: UNK
     Route: 065
     Dates: start: 202105

REACTIONS (5)
  - Weight decreased [Unknown]
  - Peripheral swelling [Recovering/Resolving]
  - Dehydration [Unknown]
  - Visual impairment [Unknown]
  - Inappropriate schedule of product administration [Unknown]
